FAERS Safety Report 6674770-6 (Version None)
Quarter: 2010Q2

REPORT INFORMATION
  Report Type: 
  Country: None (occurrence: None)
  Receive Date: 20100409
  Receipt Date: 20100405
  Transmission Date: 20101027
  Serious: Yes (Death)
  Sender: FDA-Public Use
  Company Number: US-GILEAD-2010-0028302

PATIENT
  Sex: Male
  Weight: 90.8 kg

DRUGS (5)
  1. LETAIRIS [Suspect]
     Indication: PULMONARY ARTERIAL HYPERTENSION
     Route: 048
     Dates: start: 20100123, end: 20100326
  2. LASIX [Concomitant]
  3. REVATIO [Concomitant]
  4. POTASSIUM CHLORIDE [Concomitant]
  5. AUGMENTIN '125' [Concomitant]

REACTIONS (1)
  - DEATH [None]
